FAERS Safety Report 18095830 (Version 2)
Quarter: 2020Q3

REPORT INFORMATION
  Report Type: Report from Study
  Country: GB (occurrence: GB)
  Receive Date: 20200730
  Receipt Date: 20200910
  Transmission Date: 20201103
  Serious: Yes (Hospitalization, Other)
  Sender: FDA-Public Use
  Company Number: GB-SAMSUNG BIOEPIS-SB-2020-16859

PATIENT
  Age: 59 Year
  Sex: Female

DRUGS (1)
  1. BENEPALI [Suspect]
     Active Substance: ETANERCEPT
     Indication: RHEUMATOID ARTHRITIS
     Route: 058

REACTIONS (11)
  - Injection site erythema [Recovered/Resolved]
  - Eye infection [Unknown]
  - Fatigue [Unknown]
  - Feeling abnormal [Unknown]
  - Pleurisy [Unknown]
  - Arthralgia [Unknown]
  - Pneumonia [Unknown]
  - Injection site rash [Recovered/Resolved]
  - Injection site pruritus [Recovered/Resolved]
  - Stress [Unknown]
  - COVID-19 [Unknown]
